FAERS Safety Report 14934500 (Version 1)
Quarter: 2018Q2

REPORT INFORMATION
  Report Type: Spontaneous
  Country: US (occurrence: US)
  Receive Date: 20180505
  Receipt Date: 20180505
  Transmission Date: 20180711
  Serious: No
  Sender: FDA-Public Use
  Company Number: None

PATIENT
  Age: 25 Year
  Sex: Female
  Weight: 94.5 kg

DRUGS (7)
  1. VYVANSE [Concomitant]
     Active Substance: LISDEXAMFETAMINE DIMESYLATE
  2. NEXPLANON [Concomitant]
     Active Substance: ETONOGESTREL
  3. NASAL SPRAY [Concomitant]
     Active Substance: UNSPECIFIED INGREDIENT
  4. CALCIUM [Concomitant]
     Active Substance: CALCIUM
  5. METHYLPHENIDATE ER 27 MG TAB [Suspect]
     Active Substance: METHYLPHENIDATE
     Indication: ATTENTION DEFICIT/HYPERACTIVITY DISORDER
     Dosage: ?          QUANTITY:1 TABLET(S);?
     Route: 048
     Dates: start: 20170713, end: 20170812
  6. WOMEN^S MULTIVITAMIN [Concomitant]
  7. MELATONIN [Concomitant]
     Active Substance: MELATONIN

REACTIONS (8)
  - Product substitution issue [None]
  - Irritability [None]
  - Initial insomnia [None]
  - Heart rate increased [None]
  - Blood pressure increased [None]
  - Wrong strength [None]
  - Disturbance in attention [None]
  - Tic [None]

NARRATIVE: CASE EVENT DATE: 20170713
